FAERS Safety Report 4696781-2 (Version None)
Quarter: 2005Q2

REPORT INFORMATION
  Report Type: 
  Country: None (occurrence: None)
  Receive Date: 20050620
  Receipt Date: 20010130
  Transmission Date: 20051028
  Serious: Yes (Hospitalization)
  Sender: FDA-Public Use
  Company Number: 2001042300CA

PATIENT
  Age: 70 Year
  Sex: Female
  Weight: 72.5755 kg

DRUGS (6)
  1. CELEBREX [Suspect]
     Indication: PAIN
     Dosage: 100 MG (100 MG, 1 IN 1 D), ORAL
     Route: 048
     Dates: start: 20010119, end: 20010119
  2. FOSAMEX (ALENDRONATE SODIUM) [Concomitant]
  3. PLAQUENIL [Concomitant]
  4. AZATHIOPRINE [Concomitant]
  5. OSTOFORTE (ERGOCALCIFEROL) [Concomitant]
  6. PREDNISONE [Concomitant]

REACTIONS (2)
  - STAPHYLOCOCCAL SCALDED SKIN SYNDROME [None]
  - TOXIC EPIDERMAL NECROLYSIS [None]
